FAERS Safety Report 6974474-6 (Version None)
Quarter: 2010Q3

REPORT INFORMATION
  Report Type: 
  Country: None (occurrence: None)
  Receive Date: 20100909
  Receipt Date: 20080718
  Transmission Date: 20110219
  Serious: No
  Sender: FDA-Public Use
  Company Number: US-WYE-H05193008

PATIENT
  Sex: Female

DRUGS (7)
  1. PROTONIX [Suspect]
     Indication: GASTROOESOPHAGEAL REFLUX DISEASE
     Route: 048
  2. PROTONIX [Suspect]
     Route: 048
  3. ZYRTEC [Concomitant]
  4. FLONASE [Concomitant]
  5. ASCORBIC ACID/CHONDROITIN SULFATE/GLUCOSAMINE SULFATE/MANGANESE [Concomitant]
  6. SYNTHROID [Concomitant]
  7. CRESTOR [Concomitant]

REACTIONS (2)
  - WEIGHT INCREASED [None]
  - WEIGHT LOSS POOR [None]
